FAERS Safety Report 24129573 (Version 1)
Quarter: 2024Q3

REPORT INFORMATION
  Report Type: Spontaneous
  Country: NL (occurrence: NL)
  Receive Date: 20240724
  Receipt Date: 20240724
  Transmission Date: 20241016
  Serious: Yes (Hospitalization, Other)
  Sender: ELI LILLY AND CO
  Company Number: NL-ELI_LILLY_AND_COMPANY-NL202407008061

PATIENT
  Age: 63 Year
  Sex: Male

DRUGS (7)
  1. SELPERCATINIB [Suspect]
     Active Substance: SELPERCATINIB
     Indication: Product used for unknown indication
     Dosage: 160 MG, DAILY
     Route: 048
     Dates: start: 20221117
  2. SELPERCATINIB [Suspect]
     Active Substance: SELPERCATINIB
     Dosage: 160 MG, DAILY
     Route: 048
     Dates: start: 20240710
  3. TRAMADOL [Suspect]
     Active Substance: TRAMADOL\TRAMADOL HYDROCHLORIDE
     Indication: Product used for unknown indication
     Dosage: UNK UNK, UNKNOWN
     Route: 065
  4. CALCIUM [Suspect]
     Active Substance: CALCIUM
     Indication: Hypercalcaemia
     Dosage: UNK UNK, UNKNOWN
     Route: 065
  5. ALFACALCIDOL [Concomitant]
     Active Substance: ALFACALCIDOL
     Indication: Product used for unknown indication
  6. METFORMIN [Concomitant]
     Active Substance: METFORMIN HYDROCHLORIDE
     Indication: Product used for unknown indication
  7. AMLODIPINE [Concomitant]
     Active Substance: AMLODIPINE BESYLATE
     Indication: Product used for unknown indication

REACTIONS (9)
  - Hypercalcaemia [Recovering/Resolving]
  - Dehydration [Unknown]
  - Renal impairment [Unknown]
  - Post procedural complication [Unknown]
  - Fluid intake reduced [Unknown]
  - Somnolence [Unknown]
  - Bone lesion [Unknown]
  - Abdominal discomfort [Unknown]
  - Urinary tract infection [Unknown]

NARRATIVE: CASE EVENT DATE: 20240709
